FAERS Safety Report 6657483-6 (Version None)
Quarter: 2010Q1

REPORT INFORMATION
  Report Type: 
  Country: None (occurrence: None)
  Receive Date: 20100330
  Receipt Date: 20100322
  Transmission Date: 20100710
  Serious: Yes (Other)
  Sender: FDA-Public Use
  Company Number: DE-SANOFI-AVENTIS-2010SA016175

PATIENT
  Age: 76 Year
  Sex: Female

DRUGS (1)
  1. MULTAQ [Suspect]
     Indication: TACHYARRHYTHMIA
     Route: 048
     Dates: start: 20100216, end: 20100302

REACTIONS (2)
  - HYPERBILIRUBINAEMIA [None]
  - TRANSAMINASES INCREASED [None]
